FAERS Safety Report 21375047 (Version 1)
Quarter: 2022Q3

REPORT INFORMATION
  Report Type: Spontaneous
  Country: US (occurrence: US)
  Receive Date: 20220926
  Receipt Date: 20220926
  Transmission Date: 20221026
  Serious: Yes (Other)
  Sender: FDA-Public Use
  Company Number: US-SA-SAC20220922001486

PATIENT
  Age: 54 Year
  Sex: Female

DRUGS (1)
  1. ZANTAC [Suspect]
     Active Substance: RANITIDINE HYDROCHLORIDE
     Indication: Dyspepsia
     Dosage: OTHER, FREQ: QW
     Route: 048
     Dates: start: 201501, end: 202112

REACTIONS (1)
  - Bladder cancer stage I, with cancer in situ [Not Recovered/Not Resolved]

NARRATIVE: CASE EVENT DATE: 20201001
